FAERS Safety Report 4976458-6 (Version None)
Quarter: 2006Q2

REPORT INFORMATION
  Report Type: 
  Country: None (occurrence: None)
  Receive Date: 20060419
  Receipt Date: 20060410
  Transmission Date: 20061013
  Serious: Yes (Hospitalization)
  Sender: FDA-Public Use
  Company Number: CH-ROCHE-443959

PATIENT
  Age: 49 Year
  Sex: Female

DRUGS (4)
  1. ROCEPHIN [Suspect]
     Indication: POSTOPERATIVE INFECTION
     Route: 041
     Dates: start: 20060117, end: 20060125
  2. ACETAMINOPHEN [Suspect]
     Dosage: FORM REPORTED AS FILM COATED TABLETS.
     Route: 048
     Dates: start: 20060118, end: 20060119
  3. ACETAMINOPHEN [Suspect]
     Dosage: FORM REPORTED AS INFUSION AMPOULES, BAGS.
     Route: 041
     Dates: start: 20060117, end: 20060125
  4. FLAGYL [Concomitant]
     Dosage: FORM REPORTED AS INFUSION AMPOULES, BAGS.
     Route: 041
     Dates: start: 20060120, end: 20060124

REACTIONS (7)
  - ABDOMINAL PAIN [None]
  - ANOREXIA [None]
  - HEPATIC TRAUMA [None]
  - HEPATITIS [None]
  - NAUSEA [None]
  - PYREXIA [None]
  - VOMITING [None]
